FAERS Safety Report 4989922-0 (Version None)
Quarter: 2006Q2

REPORT INFORMATION
  Report Type: 
  Country: None (occurrence: None)
  Receive Date: 20060428
  Receipt Date: 20060419
  Transmission Date: 20061013
  Serious: Yes (Disabling)
  Sender: FDA-Public Use
  Company Number: OSCN-NO-0604S-0095

PATIENT
  Age: 56 Year
  Sex: Male

DRUGS (1)
  1. OMNISCAN [Suspect]
     Dosage: 46 ML, SINGLE DOSE, I.V.
     Route: 042
     Dates: start: 20031205, end: 20031205

REACTIONS (1)
  - NEPHROGENIC FIBROSING DERMOPATHY [None]
